FAERS Safety Report 6663257-2 (Version None)
Quarter: 2010Q2

REPORT INFORMATION
  Report Type: 
  Country: None (occurrence: None)
  Receive Date: 20100401
  Receipt Date: 20100329
  Transmission Date: 20101027
  Serious: Yes (Life-Threatening, Hospitalization)
  Sender: FDA-Public Use
  Company Number: DE-BAYER-201020618GPV

PATIENT
  Age: 68 Year
  Sex: Male

DRUGS (1)
  1. AVELOX [Suspect]
     Indication: BRONCHOPNEUMONIA
     Route: 048
     Dates: start: 20100203, end: 20100207

REACTIONS (2)
  - LOWER GASTROINTESTINAL HAEMORRHAGE [None]
  - THROMBOCYTOPENIA [None]
